FAERS Safety Report 9297893 (Version 4)
Quarter: 2014Q1

REPORT INFORMATION
  Report Type: Spontaneous
  Country: US (occurrence: US)
  Receive Date: 20130520
  Receipt Date: 20140321
  Transmission Date: 20141002
  Serious: Yes (Other)
  Sender: FDA-Public Use
  Company Number: US-PFIZER INC-2013153182

PATIENT
  Age: 53 Year
  Sex: Female
  Weight: 61.22 kg

DRUGS (2)
  1. FELDENE [Suspect]
     Indication: PAIN
     Dosage: 20 MG, DAILY
  2. XANAX [Suspect]
     Dosage: UNK

REACTIONS (9)
  - Road traffic accident [Unknown]
  - Thyroid disorder [Unknown]
  - Pain [Unknown]
  - Anxiety [Unknown]
  - Epstein-Barr virus infection [Unknown]
  - Fatigue [Unknown]
  - Post-traumatic stress disorder [Unknown]
  - Bleeding time prolonged [Unknown]
  - Lipoprotein (a) increased [Unknown]
